FAERS Safety Report 4396807-X (Version None)
Quarter: 2004Q3

REPORT INFORMATION
  Report Type: 
  Country: None (occurrence: None)
  Receive Date: 20040709
  Receipt Date: 20040630
  Transmission Date: 20050211
  Serious: Yes (Other)
  Sender: FDA-Public Use
  Company Number: 2004219388JP

PATIENT
  Age: 28 Year
  Sex: Female
  Weight: 55 kg

DRUGS (1)
  1. SULFASALAZINE [Suspect]
     Indication: COLITIS ULCERATIVE
     Dosage: 1 G, QID, ORAL
     Route: 048
     Dates: start: 20040513, end: 20040605

REACTIONS (5)
  - ANAEMIA [None]
  - EATING DISORDER [None]
  - INFECTIOUS MONONUCLEOSIS [None]
  - LIVER DISORDER [None]
  - MELAENA [None]
